FAERS Safety Report 9642915 (Version 2)
Quarter: 2014Q1

REPORT INFORMATION
  Report Type: Report from Study
  Country: BR (occurrence: BR)
  Receive Date: 20131024
  Receipt Date: 20140116
  Transmission Date: 20141002
  Serious: Yes (Other)
  Sender: FDA-Public Use
  Company Number: PHHY2013BR119669

PATIENT
  Age: 73 Year
  Sex: Female
  Weight: 67 kg

DRUGS (8)
  1. ACLASTA [Suspect]
     Indication: OSTEOPENIA
     Dosage: 5 MG, UNK
     Route: 042
     Dates: start: 2011
  2. ACLASTA [Suspect]
     Dosage: 5 MG, UNK
     Route: 042
     Dates: start: 2012
  3. LOSARTAN [Concomitant]
     Dosage: UNK
     Dates: start: 2008
  4. METFORMIN [Concomitant]
     Dosage: UNK UKN, UNK
  5. ARTROLIVE [Concomitant]
     Dosage: UNK
  6. CALCIUM [Concomitant]
     Dosage: UNK
  7. OMEPRAZOLE [Concomitant]
     Dosage: UNK
  8. ARADOIS [Concomitant]
     Dosage: UNK
     Dates: start: 2009

REACTIONS (2)
  - Pneumonia [Recovering/Resolving]
  - Bone pain [Not Recovered/Not Resolved]
